FAERS Safety Report 4498433-0 (Version None)
Quarter: 2004Q4

REPORT INFORMATION
  Report Type: 
  Country: None (occurrence: None)
  Receive Date: 20041105
  Receipt Date: 20041021
  Transmission Date: 20050328
  Serious: Yes (Other)
  Sender: FDA-Public Use
  Company Number: 2004-0007247

PATIENT
  Age: 39 Year
  Sex: Female
  Weight: 60 kg

DRUGS (9)
  1. VIREAD [Suspect]
     Indication: HIV INFECTION
     Dosage: 1 IN 1 D, ORAL
     Route: 048
     Dates: start: 20040130
  2. ZIAGEN [Concomitant]
  3. NORVIR [Concomitant]
  4. AGENERASE [Concomitant]
  5. VIDEX [Concomitant]
  6. VIRACEPT [Concomitant]
  7. BACTRIM FORTE (BACTRIM) [Concomitant]
  8. TARDIFERON (FERROUS SULFATE) [Concomitant]
  9. DAFLON (DIOSMIN) [Concomitant]

REACTIONS (6)
  - BLOOD PARATHYROID HORMONE INCREASED [None]
  - CAESAREAN SECTION [None]
  - DRUG EXPOSURE DURING PREGNANCY [None]
  - HYPOCALCAEMIA [None]
  - HYPOPHOSPHATAEMIA [None]
  - PREGNANCY [None]
